FAERS Safety Report 21500150 (Version 3)
Quarter: 2023Q1

REPORT INFORMATION
  Report Type: Spontaneous
  Country: FR (occurrence: FR)
  Receive Date: 20221024
  Receipt Date: 20230102
  Transmission Date: 20230418
  Serious: Yes (Hospitalization, Other)
  Sender: FDA-Public Use
  Company Number: FR-INCYTE CORPORATION-2022IN008598

PATIENT

DRUGS (12)
  1. TAFASITAMAB [Suspect]
     Active Substance: TAFASITAMAB
     Indication: Diffuse large B-cell lymphoma
     Dosage: UNK
     Route: 065
     Dates: end: 20220720
  2. TAFASITAMAB [Suspect]
     Active Substance: TAFASITAMAB
     Dosage: DAY 1, DAY 4, DAY 8, DAY 15, DAY 22 (CYCLE 1)
     Route: 042
     Dates: start: 20220308, end: 20220411
  3. TAFASITAMAB [Suspect]
     Active Substance: TAFASITAMAB
     Dosage: WEEKLY PRESCRIPTION 11 INJECTIONS IN TOTAL SINCE JULY
     Route: 042
     Dates: start: 20220721
  4. FUROSEMIDE [Concomitant]
     Active Substance: FUROSEMIDE
     Indication: Cardiac failure
     Dosage: 20 UNK
     Route: 065
     Dates: start: 20170330
  5. VALACYCLOVIR HYDROCHLORIDE [Concomitant]
     Active Substance: VALACYCLOVIR HYDROCHLORIDE
     Indication: Herpes virus infection
     Dosage: UNK
     Route: 065
     Dates: start: 20170501
  6. BACTRIM [Concomitant]
     Active Substance: SULFAMETHOXAZOLE\TRIMETHOPRIM
     Indication: Pneumocystis jirovecii pneumonia
     Dosage: UNK
     Route: 065
     Dates: start: 20170501
  7. KARDEGIC [Concomitant]
     Active Substance: ASPIRIN DL-LYSINE
     Indication: Myocardial infarction
     Dosage: 75 UNK
     Route: 065
     Dates: start: 20170330
  8. LANTUS [Concomitant]
     Active Substance: INSULIN GLARGINE
     Indication: Diabetes mellitus
     Dosage: 60 UNK
     Route: 065
     Dates: start: 20180502
  9. LISINOPRIL [Concomitant]
     Active Substance: LISINOPRIL
     Indication: Myocardial infarction
     Dosage: 5 UNK
     Route: 065
     Dates: start: 20170330
  10. JANUVIA [Concomitant]
     Active Substance: SITAGLIPTIN PHOSPHATE
     Indication: Diabetes mellitus
     Dosage: 100 UNK
     Route: 065
     Dates: start: 20180502
  11. BISOPROLOL [Concomitant]
     Active Substance: BISOPROLOL
     Indication: Myocardial infarction
     Dosage: UNK
     Route: 065
     Dates: start: 20170330
  12. PANTOPRAZOLE [Concomitant]
     Active Substance: PANTOPRAZOLE
     Indication: Gastroduodenal ulcer
     Dosage: 20 UNK
     Route: 065
     Dates: start: 20170501

REACTIONS (6)
  - COVID-19 [Recovered/Resolved]
  - Diffuse large B-cell lymphoma [Unknown]
  - Blood disorder [Unknown]
  - Immune system disorder [Unknown]
  - Inappropriate schedule of product administration [Unknown]
  - Disease progression [Unknown]

NARRATIVE: CASE EVENT DATE: 20221010
